FAERS Safety Report 7725360-5 (Version None)
Quarter: 2011Q3

REPORT INFORMATION
  Report Type: 
  Country: None (occurrence: None)
  Receive Date: 20110829
  Receipt Date: 20110815
  Transmission Date: 20111222
  Serious: Yes (Death)
  Sender: FDA-Public Use
  Company Number: 11-061-05

PATIENT
  Age: 77 Year
  Sex: Female

DRUGS (3)
  1. FLUCONAZOLE [Suspect]
  2. VENLAFAXINE HYDROCHLORIDE [Concomitant]
  3. AMLODIPINE [Suspect]
     Indication: HYPERTENSION

REACTIONS (7)
  - DIZZINESS [None]
  - ASPHYXIA [None]
  - DRUG LEVEL ABOVE THERAPEUTIC [None]
  - BLOOD PRESSURE DECREASED [None]
  - METABOLIC DISORDER [None]
  - ASTHENIA [None]
  - TOXICITY TO VARIOUS AGENTS [None]
